FAERS Safety Report 22881060 (Version 4)
Quarter: 2023Q4

REPORT INFORMATION
  Report Type: Report from Study
  Country: KR (occurrence: None)
  Receive Date: 20230830
  Receipt Date: 20231208
  Transmission Date: 20240110
  Serious: Yes (Hospitalization)
  Sender: FDA-Public Use
  Company Number: KR-ROCHE-3412546

PATIENT
  Age: 62 Year
  Sex: Female

DRUGS (13)
  1. ATEZOLIZUMAB [Suspect]
     Active Substance: ATEZOLIZUMAB
     Indication: Colorectal cancer metastatic
     Dosage: ON 04/AUG/2023, THE MOST RECENT DOSE OF ATEZOLIZUMAB RECEIVED  PRIOR TO THE EVENTS ONSET.
     Route: 041
     Dates: start: 20230804, end: 20230804
  2. ZANZALINTINIB [Suspect]
     Active Substance: ZANZALINTINIB
     Indication: Colorectal cancer metastatic
     Dosage: ON 13 AUG 2023, THE PATIENT RECEIVED THE MOST RECENT DOSE OF XL092 PRIOR TO THE EVENTS ONSET.
     Route: 048
     Dates: start: 20230804, end: 20230813
  3. ZANZALINTINIB [Suspect]
     Active Substance: ZANZALINTINIB
     Route: 048
     Dates: start: 20230814
  4. ZANZALINTINIB [Suspect]
     Active Substance: ZANZALINTINIB
     Route: 048
     Dates: start: 20230828, end: 20230829
  5. AMLODIPINE [Concomitant]
     Active Substance: AMLODIPINE BESYLATE
     Dates: start: 20230810
  6. DESOXIMETASONE [Concomitant]
     Active Substance: DESOXIMETASONE
     Dates: start: 20230810
  7. METFORMIN HYDROCHLORIDE [Concomitant]
     Active Substance: METFORMIN HYDROCHLORIDE
     Dates: start: 20230201
  8. PANTOPRAZOLE SODIUM [Concomitant]
     Active Substance: PANTOPRAZOLE SODIUM
     Dates: start: 20230725, end: 20230725
  9. NALOXONE HYDROCHLORIDE\OXYCODONE HYDROCHLORIDE [Concomitant]
     Active Substance: NALOXONE HYDROCHLORIDE\OXYCODONE HYDROCHLORIDE
     Dates: start: 20230727
  10. TRAMADOL HYDROCHLORIDE [Concomitant]
     Active Substance: TRAMADOL HYDROCHLORIDE
     Dates: start: 20230725, end: 20230725
  11. TRIRAM [Concomitant]
     Dates: start: 20230417
  12. TACENOL [Concomitant]
  13. METOCLOPRAMIDE HYDROCHLORIDE [Concomitant]
     Active Substance: METOCLOPRAMIDE HYDROCHLORIDE

REACTIONS (2)
  - Pyrexia [Recovered/Resolved]
  - Stevens-Johnson syndrome [Recovered/Resolved with Sequelae]

NARRATIVE: CASE EVENT DATE: 20230814
